FAERS Safety Report 9391921 (Version 1)
Quarter: 2013Q3

REPORT INFORMATION
  Report Type: Spontaneous
  Country: IT (occurrence: None)
  Receive Date: 20130705
  Receipt Date: 20130705
  Transmission Date: 20140515
  Serious: Yes (Hospitalization)
  Sender: FDA-Public Use
  Company Number: IT-023374

PATIENT
  Age: 61 Year
  Sex: Female

DRUGS (1)
  1. CHLORAMBUCIL [Suspect]
     Indication: CHRONIC LYMPHOCYTIC LEUKAEMIA
     Dosage: DAYS 1  AND 15 EVERY 28 DAYS (28 MILLIGRAM, 1 IN 1 WEEKS), ORAL
     Route: 048
     Dates: start: 20101020, end: 20101217

REACTIONS (5)
  - Renal failure [None]
  - Nausea [None]
  - Asthenia [None]
  - Decreased appetite [None]
  - Mucosal inflammation [None]
